FAERS Safety Report 25123454 (Version 1)
Quarter: 2025Q1

REPORT INFORMATION
  Report Type: Report from Study
  Country: BR (occurrence: BR)
  Receive Date: 20250326
  Receipt Date: 20250326
  Transmission Date: 20250409
  Serious: Yes (Other)
  Sender: ROCHE
  Company Number: BR-ROCHE-10000236485

PATIENT

DRUGS (1)
  1. ATEZOLIZUMAB [Suspect]
     Active Substance: ATEZOLIZUMAB
     Indication: Neoplasm malignant
     Route: 065

REACTIONS (3)
  - Skin disorder [Unknown]
  - Oral disorder [Unknown]
  - Dry mouth [Unknown]
